FAERS Safety Report 26080497 (Version 1)
Quarter: 2025Q4

REPORT INFORMATION
  Report Type: Spontaneous
  Country: IN (occurrence: IN)
  Receive Date: 20251124
  Receipt Date: 20251124
  Transmission Date: 20260118
  Serious: No
  Sender: ALKEM
  Company Number: IN-ALKEM LABORATORIES LIMITED-IN-ALKEM-2025-07664

PATIENT
  Sex: Male

DRUGS (5)
  1. CEFIXIME [Suspect]
     Active Substance: CEFIXIME
     Indication: Abdominal infection
     Dosage: 200 MILLIGRAM, BID
     Route: 065
     Dates: start: 20250706
  2. CEFIXIME [Suspect]
     Active Substance: CEFIXIME
     Indication: Abdominal pain upper
  3. Cymotus forte [Concomitant]
     Indication: Product used for unknown indication
     Dosage: UNK
     Route: 065
  4. Rifagut 550 [Concomitant]
     Indication: Product used for unknown indication
     Dosage: UNK
     Route: 065
  5. LIBRAX [Concomitant]
     Active Substance: CHLORDIAZEPOXIDE HYDROCHLORIDE\CLIDINIUM BROMIDE
     Indication: Product used for unknown indication
     Dosage: UNK
     Route: 065

REACTIONS (1)
  - Rash [Not Recovered/Not Resolved]
